FAERS Safety Report 6968388-5 (Version None)
Quarter: 2010Q3

REPORT INFORMATION
  Report Type: 
  Country: None (occurrence: None)
  Receive Date: 20100907
  Receipt Date: 20100825
  Transmission Date: 20110219
  Serious: No
  Sender: FDA-Public Use
  Company Number: US-B.I. PHARMACEUTICALS,INC./RIDGEFIELD-2010-BP-09622BP

PATIENT
  Sex: Male

DRUGS (4)
  1. ZANTAC 150 [Suspect]
     Indication: GASTROOESOPHAGEAL REFLUX DISEASE
     Route: 048
     Dates: start: 20100824
  2. ZANTAC 150 [Suspect]
     Indication: DYSPEPSIA
  3. LISINOPRIL [Concomitant]
     Indication: HYPERTENSION
     Dates: start: 20070101
  4. UNKNOWN ARTHRITIS MED [Concomitant]
     Indication: ARTHRITIS
     Dates: start: 20000101

REACTIONS (1)
  - DYSPEPSIA [None]
